FAERS Safety Report 14305411 (Version 1)
Quarter: 2017Q4

REPORT INFORMATION
  Report Type: Spontaneous
  Country: US (occurrence: US)
  Receive Date: 20171219
  Receipt Date: 20171219
  Transmission Date: 20180321
  Serious: Yes (Other)
  Sender: FDA-Public Use
  Company Number: US-OTSUKA-DJ20111981

PATIENT
  Age: 37 Year
  Sex: Male

DRUGS (1)
  1. ABILIFY [Suspect]
     Active Substance: ARIPIPRAZOLE
     Indication: SCHIZOAFFECTIVE DISORDER
     Dosage: 1 DF, UNK
     Route: 065

REACTIONS (4)
  - Hepatic enzyme increased [Unknown]
  - Drug ineffective [Unknown]
  - Hepatic steatosis [Unknown]
  - Swelling face [Unknown]
